FAERS Safety Report 25571342 (Version 3)
Quarter: 2025Q3

REPORT INFORMATION
  Report Type: Other
  Country: EU (occurrence: EU)
  Receive Date: 20250717
  Receipt Date: 20250806
  Transmission Date: 20251020
  Serious: Yes (Other)
  Sender: MACLEODS
  Company Number: EU-SANDOZ-SDZ2025IT021638

PATIENT

DRUGS (13)
  1. FENOFIBRATE [Suspect]
     Active Substance: FENOFIBRATE
     Indication: Type IIa hyperlipidaemia
     Dosage: 145 MG 1  CPR/DAY
     Route: 048
     Dates: start: 2016, end: 20241010
  2. FENOFIBRATE [Suspect]
     Active Substance: FENOFIBRATE
     Indication: Type IIa hyperlipidaemia
  3. FENOFIBRATE [Suspect]
     Active Substance: FENOFIBRATE
     Indication: Hyperlipidaemia
  4. EZETIMIBE [Suspect]
     Active Substance: EZETIMIBE
     Indication: Type IIa hyperlipidaemia
     Dosage: 10 MG, QD
     Route: 065
  5. EZETIMIBE [Suspect]
     Active Substance: EZETIMIBE
     Indication: Hyperlipidaemia
  6. LEVOTHYROXINE [Suspect]
     Active Substance: LEVOTHYROXINE
     Indication: Hyperlipidaemia
     Dosage: 175 UG 1 TABLET/DAY
     Route: 065
  7. PANTOPRAZOLE [Suspect]
     Active Substance: PANTOPRAZOLE
     Indication: Hyperlipidaemia
     Dosage: 20 MG 1 TABLET/DAY
     Route: 065
  8. VALSARTAN [Suspect]
     Active Substance: VALSARTAN
     Indication: Hyperlipidaemia
     Dosage: 80 MG 1 TABLET/DAY
     Route: 065
  9. BISOPROLOL [Suspect]
     Active Substance: BISOPROLOL
     Indication: Hyperlipidaemia
     Dosage: 1.25 MG 2 TABLETS IN THE MORNING + 1 TABLET IN THE EVENING
     Route: 065
  10. RANOLAZINE [Suspect]
     Active Substance: RANOLAZINE
     Indication: Hyperlipidaemia
     Dosage: 375 MG, BIW
     Route: 065
  11. BEMPEDOIC ACID [Suspect]
     Active Substance: BEMPEDOIC ACID
     Indication: Type IIa hyperlipidaemia
     Dosage: 180 MG 1 CPR/DAY
     Route: 048
     Dates: start: 20230501
  12. EVOLOCUMAB [Suspect]
     Active Substance: EVOLOCUMAB
     Indication: Type IIa hyperlipidaemia
     Dosage: 420 MG, EVERY 28 DAYS (EVERY 4 WEEKS), 140 MG 3 SC VIALS
     Route: 058
  13. EVOLOCUMAB [Suspect]
     Active Substance: EVOLOCUMAB
     Indication: Hyperlipidaemia
     Dosage: 140 MG 3 SC VIALS
     Route: 058

REACTIONS (2)
  - High density lipoprotein decreased [Recovered/Resolved]
  - Drug interaction [Recovered/Resolved]

NARRATIVE: CASE EVENT DATE: 20231001
